FAERS Safety Report 10060363 (Version 2)
Quarter: 2014Q3

REPORT INFORMATION
  Report Type: Spontaneous
  Country: US (occurrence: US)
  Receive Date: 20140404
  Receipt Date: 20140829
  Transmission Date: 20150326
  Serious: Yes (Death, Hospitalization, Other)
  Sender: FDA-Public Use
  Company Number: US-009507513-1404USA003442

PATIENT
  Sex: Female

DRUGS (1)
  1. JANUVIA [Suspect]
     Active Substance: SITAGLIPTIN PHOSPHATE
     Dosage: 100 MG, QD
     Route: 048
     Dates: start: 20120516, end: 20130118

REACTIONS (9)
  - Fear of death [Unknown]
  - Stress [Unknown]
  - Cancer surgery [Unknown]
  - Death [Fatal]
  - Metastases to bone [Unknown]
  - Anxiety [Unknown]
  - Radiotherapy [Unknown]
  - Pancreatic carcinoma metastatic [Unknown]
  - Depression [Unknown]

NARRATIVE: CASE EVENT DATE: 201301
